FAERS Safety Report 7458017-9 (Version None)
Quarter: 2011Q2

REPORT INFORMATION
  Report Type: 
  Country: None (occurrence: None)
  Receive Date: 20110504
  Receipt Date: 20110217
  Transmission Date: 20111010
  Serious: Yes (Other)
  Sender: FDA-Public Use
  Company Number: US-SANOFI-AVENTIS-2011SA011067

PATIENT
  Age: 41 Year
  Sex: Male

DRUGS (2)
  1. APIDRA [Suspect]
     Dosage: AS PER SLIDING SCALE DEPENDING ON CARBOHYDRATE COUNT AND BLOOD SUGAR
     Route: 058
  2. APIDRA [Suspect]
     Dosage: AS PER SLIDING SCALE DEPENDING ON CARBOHYDRATE COUNT AND BLOOD SUGAR
     Route: 058

REACTIONS (3)
  - PRODUCT QUALITY ISSUE [None]
  - HYPOGLYCAEMIC SEIZURE [None]
  - BLOOD GLUCOSE INCREASED [None]
